FAERS Safety Report 6492989-4 (Version None)
Quarter: 2009Q4

REPORT INFORMATION
  Report Type: 
  Country: None (occurrence: None)
  Receive Date: 20091214
  Receipt Date: 20091207
  Transmission Date: 20100525
  Serious: Yes (Hospitalization)
  Sender: FDA-Public Use
  Company Number: DK-WYE-G05081509

PATIENT
  Sex: Male
  Weight: 70 kg

DRUGS (1)
  1. EFFEXOR [Suspect]
     Indication: ANXIETY
     Dates: start: 20061115

REACTIONS (2)
  - CHROMATURIA [None]
  - COMPARTMENT SYNDROME [None]
